FAERS Safety Report 24921271 (Version 2)
Quarter: 2025Q1

REPORT INFORMATION
  Report Type: Spontaneous
  Country: DE (occurrence: DE)
  Receive Date: 20250204
  Receipt Date: 20250317
  Transmission Date: 20250409
  Serious: Yes (Hospitalization)
  Sender: NOVARTIS
  Company Number: DE-002147023-NVSC2025DE016747

PATIENT
  Age: 47 Year
  Sex: Male

DRUGS (1)
  1. KESIMPTA [Suspect]
     Active Substance: OFATUMUMAB
     Indication: Multiple sclerosis
     Dosage: 20 MG QMO (PEN)
     Route: 058
     Dates: start: 20240611

REACTIONS (7)
  - Prostatitis [Recovered/Resolved with Sequelae]
  - Prostatomegaly [Unknown]
  - White blood cell count decreased [Unknown]
  - Blood bilirubin abnormal [Unknown]
  - N-terminal prohormone brain natriuretic peptide abnormal [Unknown]
  - CD19 lymphocytes decreased [Unknown]
  - B-lymphocyte count decreased [Unknown]

NARRATIVE: CASE EVENT DATE: 20240724
